FAERS Safety Report 23723131 (Version 1)
Quarter: 2024Q2

REPORT INFORMATION
  Report Type: Spontaneous
  Country: US (occurrence: US)
  Receive Date: 20240409
  Receipt Date: 20240409
  Transmission Date: 20240716
  Serious: No
  Sender: FDA-Public Use
  Company Number: US-MYLANLABS-2024M1026012

PATIENT
  Sex: Female
  Weight: 65.77 kg

DRUGS (1)
  1. BREYNA [Suspect]
     Active Substance: BUDESONIDE\FORMOTEROL FUMARATE
     Indication: Asthma
     Dosage: 160/4.5 MCG, BID (2 PUFFS BY MOUTH)
     Route: 055

REACTIONS (5)
  - Migraine [Unknown]
  - Eye disorder [Unknown]
  - Palpitations [Not Recovered/Not Resolved]
  - Tremor [Unknown]
  - Headache [Unknown]
